FAERS Safety Report 19241848 (Version 1)
Quarter: 2021Q2

REPORT INFORMATION
  Report Type: Spontaneous
  Country: US (occurrence: US)
  Receive Date: 20210511
  Receipt Date: 20210511
  Transmission Date: 20210717
  Serious: No
  Sender: FDA-Public Use
  Company Number: None

PATIENT
  Sex: Female

DRUGS (2)
  1. HYDROCODONE [Suspect]
     Active Substance: HYDROCODONE
  2. BACLOFEN. [Suspect]
     Active Substance: BACLOFEN

REACTIONS (6)
  - Chills [None]
  - Headache [None]
  - Back pain [None]
  - Muscle spasms [None]
  - Pyrexia [None]
  - Vomiting [None]
